FAERS Safety Report 12037501 (Version 1)
Quarter: 2016Q1

REPORT INFORMATION
  Report Type: Spontaneous
  Country: US (occurrence: None)
  Receive Date: 20160205
  Receipt Date: 20160205
  Transmission Date: 20160526
  Serious: Yes (Life-Threatening)
  Sender: FDA-Public Use
  Company Number: None

PATIENT
  Age: 39 Year
  Sex: Female
  Weight: 74.84 kg

DRUGS (5)
  1. SYNTHROID [Concomitant]
     Active Substance: LEVOTHYROXINE SODIUM
  2. LAMOTRIGINE. [Suspect]
     Active Substance: LAMOTRIGINE
     Indication: PRODUCT USED FOR UNKNOWN INDICATION
     Route: 048
     Dates: start: 20070223, end: 20160203
  3. VITAMIN D3 [Concomitant]
     Active Substance: CHOLECALCIFEROL
  4. IRON [Concomitant]
     Active Substance: IRON
  5. FISH OIL [Concomitant]
     Active Substance: FISH OIL

REACTIONS (22)
  - Sinusitis [None]
  - Orthostatic hypotension [None]
  - Balance disorder [None]
  - Dyspnoea [None]
  - Asthenia [None]
  - Seizure [None]
  - Dizziness [None]
  - Dyskinesia [None]
  - Agitation [None]
  - Respiratory tract infection [None]
  - Cognitive disorder [None]
  - Vertigo [None]
  - Muscle atrophy [None]
  - Inflammation [None]
  - Coordination abnormal [None]
  - Somnolence [None]
  - Tenderness [None]
  - Muscle contracture [None]
  - Photosensitivity reaction [None]
  - Encephalopathy [None]
  - Unresponsive to stimuli [None]
  - Feeling abnormal [None]

NARRATIVE: CASE EVENT DATE: 20160203
